FAERS Safety Report 8269306-2 (Version None)
Quarter: 2012Q2

REPORT INFORMATION
  Report Type: 
  Country: None (occurrence: None)
  Receive Date: 20120409
  Receipt Date: 20120328
  Transmission Date: 20120825
  Serious: Yes (Death, Hospitalization)
  Sender: FDA-Public Use
  Company Number: US-ROCHE-1030397

PATIENT
  Sex: Female

DRUGS (7)
  1. PERCOCET [Concomitant]
  2. PEGASYS [Suspect]
     Indication: HEPATITIS C
     Route: 058
     Dates: start: 20110826, end: 20111127
  3. ALBUTEROL [Concomitant]
  4. TRAMADOL HCL [Concomitant]
     Route: 048
  5. TELAPREVIR [Suspect]
     Indication: HEPATITIS C
     Dosage: 200 G EVERY 8 HOURS
     Route: 048
     Dates: end: 20111127
  6. RIBAVIRIN [Suspect]
     Indication: HEPATITIS C
     Route: 048
     Dates: end: 20111127
  7. PROPANOLOLI HYDROCHLORIDUM [Concomitant]

REACTIONS (2)
  - BLEEDING VARICOSE VEIN [None]
  - EXSANGUINATION [None]
